FAERS Safety Report 6812020-8 (Version None)
Quarter: 2010Q3

REPORT INFORMATION
  Report Type: 
  Country: None (occurrence: None)
  Receive Date: 20100701
  Receipt Date: 20100607
  Transmission Date: 20110219
  Serious: Yes (Other)
  Sender: FDA-Public Use
  Company Number: PHEH2010US01821

PATIENT
  Sex: Female

DRUGS (6)
  1. RECLAST [Suspect]
     Indication: OSTEOPOROSIS
     Dosage: 5 MG, UNK
     Dates: start: 20091007, end: 20091007
  2. LEXAPRO [Concomitant]
     Indication: ANXIETY
     Dosage: UNK
     Route: 048
  3. VAGIFEM [Concomitant]
     Indication: HORMONE REPLACEMENT THERAPY
     Dosage: UNK
     Route: 048
  4. CALCIUM CARBONATE [Concomitant]
     Dosage: UNK
     Route: 048
  5. VITAMIN D [Concomitant]
     Dosage: UNK
     Route: 048
  6. L-LYSINE [Concomitant]
     Dosage: UNK
     Route: 048

REACTIONS (6)
  - BLOOD PRESSURE DECREASED [None]
  - BLOOD PRESSURE FLUCTUATION [None]
  - BLOOD PRESSURE INCREASED [None]
  - HYPERHIDROSIS [None]
  - HYPOAESTHESIA [None]
  - LOSS OF CONSCIOUSNESS [None]
